FAERS Safety Report 4920238-4 (Version None)
Quarter: 2006Q1

REPORT INFORMATION
  Report Type: 
  Country: None (occurrence: None)
  Receive Date: 20060113
  Receipt Date: 20050929
  Transmission Date: 20060701
  Serious: No
  Sender: FDA-Public Use
  Company Number: 2005SP003288

PATIENT
  Age: 59 Year
  Sex: Female
  Weight: 86.1834 kg

DRUGS (3)
  1. LUNESTA [Suspect]
     Indication: SLEEP APNOEA SYNDROME
     Dosage: 2 MG; PRN; ORAL
     Route: 048
     Dates: start: 20050901, end: 20051001
  2. ACCUPRIL [Concomitant]
  3. ZOLOFT [Concomitant]

REACTIONS (1)
  - DYSGEUSIA [None]
